FAERS Safety Report 19643983 (Version 4)
Quarter: 2021Q3

REPORT INFORMATION
  Report Type: Spontaneous
  Country: US (occurrence: US)
  Receive Date: 20210731
  Receipt Date: 20210930
  Transmission Date: 20211014
  Serious: Yes (Other)
  Sender: FDA-Public Use
  Company Number: US-JNJFOC-20210752368

PATIENT
  Sex: Male

DRUGS (1)
  1. NEUTROGENA BEACH DEFENSE SUNSCREEN [Suspect]
     Active Substance: AVOBENZONE\HOMOSALATE\OCTISALATE\OCTOCRYLENE
     Indication: PROPHYLAXIS AGAINST SOLAR RADIATION
     Dosage: USED PRIMARILY IN SUMMER BUT ALSO IN OTHER SEASONS WHEN IN THE SUN.
     Route: 061
     Dates: start: 2011, end: 2021

REACTIONS (2)
  - Actinic keratosis [Not Recovered/Not Resolved]
  - Squamous cell carcinoma [Not Recovered/Not Resolved]

NARRATIVE: CASE EVENT DATE: 2019
